FAERS Safety Report 7239167-9 (Version None)
Quarter: 2011Q1

REPORT INFORMATION
  Report Type: 
  Country: None (occurrence: None)
  Receive Date: 20110121
  Receipt Date: 20020313
  Transmission Date: 20110831
  Serious: Yes (Death, Other)
  Sender: FDA-Public Use
  Company Number: PHHY2002US02358

PATIENT
  Age: 49 Year
  Sex: Male

DRUGS (5)
  1. CYCLOSPORINE [Suspect]
     Indication: RENAL TRANSPLANT
     Dosage: 500 MG/DAY
  2. MYCOPHENOLATE MOFETIL [Concomitant]
     Dosage: UNK
  3. PREDNISONE [Concomitant]
  4. CYCLOSPORINE [Suspect]
     Indication: LIVER TRANSPLANT
     Dosage: 625 MG/DAY
  5. AMPHOTERICINE B, LIPOSOME [Concomitant]
     Dosage: 300 MG/DAY

REACTIONS (13)
  - FALL [None]
  - NEPHROPATHY [None]
  - KIDNEY FIBROSIS [None]
  - SICKLE CELL ANAEMIA [None]
  - PULMONARY EMBOLISM [None]
  - CARDIO-RESPIRATORY ARREST [None]
  - NEPHROPATHY TOXIC [None]
  - HIP FRACTURE [None]
  - PULMONARY OEDEMA [None]
  - CARDIAC HYPERTROPHY [None]
  - PERICARDIAL HAEMORRHAGE [None]
  - RENAL PAPILLARY NECROSIS [None]
  - INTRACRANIAL ANEURYSM [None]
